FAERS Safety Report 20669291 (Version 1)
Quarter: 2022Q2

REPORT INFORMATION
  Report Type: Spontaneous
  Country: CN (occurrence: CN)
  Receive Date: 20220404
  Receipt Date: 20220404
  Transmission Date: 20220720
  Serious: Yes (Hospitalization)
  Sender: FDA-Public Use
  Company Number: CN-NOVARTISPH-NVSC2022CN075523

PATIENT
  Age: 65 Year
  Sex: Male
  Weight: 90 kg

DRUGS (3)
  1. SACUBITRIL\VALSARTAN [Suspect]
     Active Substance: SACUBITRIL\VALSARTAN
     Indication: Arteriosclerosis coronary artery
     Dosage: 100 MG, QD
     Route: 048
     Dates: start: 20220327, end: 20220330
  2. TICAGRELOR [Concomitant]
     Active Substance: TICAGRELOR
     Indication: Arteriosclerosis coronary artery
     Dosage: 90 MG, BID
     Route: 048
     Dates: start: 20220327, end: 20220330
  3. IOMERON [Concomitant]
     Active Substance: IOMEPROL
     Indication: Arteriosclerosis coronary artery
     Dosage: 100 ML, QD
     Route: 042
     Dates: start: 20220328, end: 20220328

REACTIONS (1)
  - Face oedema [Recovering/Resolving]

NARRATIVE: CASE EVENT DATE: 20220330
